FAERS Safety Report 20877235 (Version 1)
Quarter: 2022Q2

REPORT INFORMATION
  Report Type: Spontaneous
  Country: US (occurrence: None)
  Receive Date: 20220525
  Receipt Date: 20220525
  Transmission Date: 20220721
  Serious: Yes (Life-Threatening, Hospitalization, Disabling)
  Sender: FDA-Public Use
  Company Number: None

PATIENT
  Sex: Female
  Weight: 67.05 kg

DRUGS (2)
  1. LENALIDOMIDE [Suspect]
     Active Substance: LENALIDOMIDE
     Indication: Plasma cell myeloma
     Dates: start: 20220424, end: 20220522
  2. LISINOPRIL [Concomitant]
     Active Substance: LISINOPRIL

REACTIONS (5)
  - Product substitution issue [None]
  - Platelet count decreased [None]
  - Diarrhoea [None]
  - Contusion [None]
  - Rhinorrhoea [None]
